FAERS Safety Report 9239327 (Version 2)
Quarter: 2013Q2

REPORT INFORMATION
  Report Type: Report from Study
  Country: DE (occurrence: DE)
  Receive Date: 20130418
  Receipt Date: 20130424
  Transmission Date: 20140414
  Serious: Yes (Hospitalization)
  Sender: FDA-Public Use
  Company Number: DE-ROCHE-1214574

PATIENT
  Sex: Male

DRUGS (17)
  1. RITUXIMAB [Suspect]
     Indication: B-CELL LYMPHOMA
     Dosage: LAST DOSE PRIOR TO SAE:02/APR/2013
     Route: 042
     Dates: start: 20130129
  2. PEGFILGRASTIM [Suspect]
     Indication: B-CELL LYMPHOMA
     Dosage: 1 PER CYCLE, LAST DOSE PRIOR TO SAE: 06/APR/2013
     Route: 058
     Dates: start: 20130205
  3. CYCLOPHOSPHAMIDE [Suspect]
     Indication: B-CELL LYMPHOMA
     Dosage: LAST DOSE PRIOR TO SAE:03/APR/2013
     Route: 042
     Dates: start: 20130202
  4. DOXORUBICINE [Suspect]
     Indication: B-CELL LYMPHOMA
     Dosage: LAST DOSE PRIOR TO SAE:03/APR/2013
     Route: 042
     Dates: start: 20130202
  5. VINCRISTINE [Suspect]
     Indication: B-CELL LYMPHOMA
     Dosage: LAST DOSE PRIOR TO SAE:03/APR/2013
     Route: 042
     Dates: start: 20130202
  6. PREDNISOLONE [Suspect]
     Indication: B-CELL LYMPHOMA
     Dosage: LAST DOSE PRIOR TO SAE: 07/APR/2013
     Route: 048
     Dates: start: 20130202
  7. TORASEMID [Concomitant]
     Indication: DIURETIC THERAPY
     Route: 048
  8. ALLOPURINOL [Concomitant]
     Indication: DIURETIC THERAPY
     Route: 048
  9. MIRTAZAPINE [Concomitant]
     Indication: ANTIDEPRESSANT THERAPY
     Route: 048
  10. ESCITALOPRAM [Concomitant]
     Indication: ANTIDEPRESSANT THERAPY
     Route: 048
  11. METOCLOPRAMIDE [Concomitant]
     Indication: PAIN
     Dosage: PER RENATA
     Route: 048
  12. ACETYLSALICYLIC ACID [Concomitant]
     Indication: CORONARY ARTERY DISEASE
     Route: 048
  13. PANTOPRAZOL [Concomitant]
     Indication: PROPHYLAXIS AGAINST GASTROINTESTINAL ULCER
     Route: 048
  14. RAMIPRIL [Concomitant]
     Indication: HYPERTENSION
     Route: 048
  15. NEBIVOLOL [Concomitant]
     Indication: HYPERTENSION
     Route: 048
  16. LERCANIDIPINE HYDROCHLORIDE [Concomitant]
     Indication: HYPERTENSION
     Route: 048
  17. TRAMADOL [Concomitant]
     Indication: PAIN
     Dosage: 4 X 30, PER RENATA
     Route: 048

REACTIONS (1)
  - General physical health deterioration [Recovered/Resolved]
